FAERS Safety Report 5202725-7 (Version None)
Quarter: 2006Q4

REPORT INFORMATION
  Report Type: 
  Country: None (occurrence: None)
  Receive Date: 20061016
  Receipt Date: 20060828
  Transmission Date: 20070319
  Serious: No
  Sender: FDA-Public Use
  Company Number: 2006SP003132

PATIENT
  Sex: 0

DRUGS (3)
  1. LUNESTA [Suspect]
     Dosage: ORAL
     Route: 048
  2. TOPAMAX [Concomitant]
  3. WELLBUTRIN [Concomitant]

REACTIONS (2)
  - AGEUSIA [None]
  - PARAESTHESIA [None]
